FAERS Safety Report 24533925 (Version 3)
Quarter: 2024Q4

REPORT INFORMATION
  Report Type: Report from Study
  Country: US (occurrence: US)
  Receive Date: 20241022
  Receipt Date: 20241109
  Transmission Date: 20250114
  Serious: Yes (Other)
  Sender: AIMMUNE
  Company Number: US-AIMMUNE THERAPEUTICS, INC.-2024AIMT00206

PATIENT

DRUGS (4)
  1. VOWST [Suspect]
     Active Substance: DONOR HUMAN STOOL SPORES (ETHANOL TREATED)
     Indication: Clostridium difficile infection
     Dosage: 4 CAPSULES, 1X/DAY FOR 3 DAYS
     Route: 048
     Dates: start: 20240207
  2. VOWST [Suspect]
     Active Substance: DONOR HUMAN STOOL SPORES (ETHANOL TREATED)
     Dosage: 4 CAPSULES, ONCE, LAST DOSE PRIOR EVENT DIARRHEA
     Route: 048
     Dates: start: 20240207, end: 20240207
  3. VOWST [Suspect]
     Active Substance: DONOR HUMAN STOOL SPORES (ETHANOL TREATED)
     Dosage: 4 CAPSULES, ONCE, LAST DOSE PRIOR EVENTS LACK OF EFFECT, RECURRED AND ABDOMINAL PAIN
     Route: 048
  4. VOWST [Suspect]
     Active Substance: DONOR HUMAN STOOL SPORES (ETHANOL TREATED)
     Dosage: 12 CAPSULES, AS DIRECTED
     Route: 048
     Dates: start: 20241002, end: 20241004

REACTIONS (5)
  - Clostridium difficile infection [Unknown]
  - Abdominal pain [Unknown]
  - Drug ineffective [Not Recovered/Not Resolved]
  - Diarrhoea [Not Recovered/Not Resolved]
  - Diarrhoea [Not Recovered/Not Resolved]

NARRATIVE: CASE EVENT DATE: 20240207
